FAERS Safety Report 10283347 (Version 1)
Quarter: 2014Q3

REPORT INFORMATION
  Report Type: Spontaneous
  Country: US (occurrence: None)
  Receive Date: 20140702
  Receipt Date: 20140702
  Transmission Date: 20150326
  Serious: Yes (Hospitalization)
  Sender: FDA-Public Use
  Company Number: None

PATIENT
  Age: 31 Year
  Sex: Female

DRUGS (1)
  1. HUMIRA [Suspect]
     Active Substance: ADALIMUMAB
     Dosage: 40 MG ONCE EVERY WEEK SUB Q
     Route: 058
     Dates: start: 20120711

REACTIONS (2)
  - Irritable bowel syndrome [None]
  - Crohn^s disease [None]

NARRATIVE: CASE EVENT DATE: 20140628
